FAERS Safety Report 5693521-5 (Version None)
Quarter: 2008Q2

REPORT INFORMATION
  Report Type: 
  Country: None (occurrence: None)
  Receive Date: 20080403
  Receipt Date: 20080325
  Transmission Date: 20081010
  Serious: Yes (Other)
  Sender: FDA-Public Use
  Company Number: B0514953A

PATIENT
  Age: 23 Year
  Sex: Female

DRUGS (3)
  1. ARIXTRA [Suspect]
     Dosage: 2.5MG PER DAY
     Route: 058
     Dates: start: 20080214, end: 20080220
  2. ACETAMINOPHEN [Concomitant]
     Route: 065
  3. NON STEROIDAL ANTI-INFLAMMATORY [Concomitant]
     Route: 065

REACTIONS (5)
  - LEUKOPENIA [None]
  - MUSCULOSKELETAL STIFFNESS [None]
  - PHARYNGOLARYNGEAL PAIN [None]
  - PYREXIA [None]
  - RASH MACULAR [None]
